FAERS Safety Report 17305219 (Version 1)
Quarter: 2020Q1

REPORT INFORMATION
  Report Type: Spontaneous
  Country: KR (occurrence: KR)
  Receive Date: 20200123
  Receipt Date: 20200123
  Transmission Date: 20200409
  Serious: Yes (Death, Life-Threatening, Hospitalization, Other)
  Sender: FDA-Public Use
  Company Number: KR-LUPIN PHARMACEUTICALS INC.-2020-00315

PATIENT
  Age: 43 Year
  Sex: Male

DRUGS (5)
  1. VITAMIN B1 [Concomitant]
     Active Substance: THIAMINE HYDROCHLORIDE
     Indication: HEPATITIS ALCOHOLIC
     Dosage: UNK
     Route: 065
  2. THIAMINE. [Concomitant]
     Active Substance: THIAMINE
     Indication: HEPATITIS ALCOHOLIC
     Dosage: UNK
     Route: 065
  3. CIPROFLOXACIN. [Concomitant]
     Active Substance: CIPROFLOXACIN
     Indication: HEPATITIS ALCOHOLIC
     Dosage: UNK
     Route: 065
  4. METHYLPREDNISOLONE. [Suspect]
     Active Substance: METHYLPREDNISOLONE
     Indication: HEPATITIS ALCOHOLIC
     Dosage: 40 MILLIGRAM, QD
     Route: 065
  5. METHYLPREDNISOLONE. [Suspect]
     Active Substance: METHYLPREDNISOLONE
     Dosage: 10 MILLIGRAM, QD
     Route: 065

REACTIONS (4)
  - Pneumocystis jirovecii pneumonia [Fatal]
  - Pulmonary alveolar haemorrhage [Unknown]
  - Disseminated intravascular coagulation [Unknown]
  - Multiple organ dysfunction syndrome [Unknown]
